FAERS Safety Report 24444023 (Version 1)
Quarter: 2024Q4

REPORT INFORMATION
  Report Type: Spontaneous
  Country: US (occurrence: None)
  Receive Date: 20241015
  Receipt Date: 20241015
  Transmission Date: 20250114
  Serious: Yes (Other)
  Sender: Public
  Company Number: None

PATIENT
  Age: 60 Year
  Sex: Female
  Weight: 80.38 kg

DRUGS (2)
  1. FEZOLINETANT [Suspect]
     Active Substance: FEZOLINETANT
  2. VEOZAH [Concomitant]
     Active Substance: FEZOLINETANT
     Dates: start: 20240726, end: 20241001

REACTIONS (1)
  - Abdominal pain upper [None]

NARRATIVE: CASE EVENT DATE: 20241001
